FAERS Safety Report 9675218 (Version 2)
Quarter: 2013Q4

REPORT INFORMATION
  Report Type: Spontaneous
  Country: US (occurrence: US)
  Receive Date: 20131107
  Receipt Date: 20131107
  Transmission Date: 20140711
  Serious: No
  Sender: FDA-Public Use
  Company Number: US-PFIZER INC-2013296968

PATIENT
  Age: 80 Year
  Sex: Female
  Weight: 54.42 kg

DRUGS (2)
  1. PROVERA [Suspect]
     Indication: OSTEOPOROSIS
     Dosage: 2.5 MG, 1X/DAY
     Route: 048
  2. PREMARIN [Concomitant]
     Indication: OSTEOPOROSIS PROPHYLAXIS
     Dosage: 0.3 MG, 1X/DAY
     Route: 048

REACTIONS (1)
  - Mydriasis [Unknown]
